FAERS Safety Report 4900551-7 (Version None)
Quarter: 2006Q1

REPORT INFORMATION
  Report Type: 
  Country: None (occurrence: None)
  Receive Date: 20060127
  Receipt Date: 20051111
  Transmission Date: 20060701
  Serious: Yes (Other)
  Sender: FDA-Public Use
  Company Number: CLOF-10142

PATIENT
  Age: 78 Year
  Sex: Male

DRUGS (10)
  1. CLOFARABINE [Suspect]
     Indication: ACUTE MYELOID LEUKAEMIA
     Dosage: 58. 2 MG QD X 3 IV
     Route: 042
     Dates: start: 20050331, end: 20050402
  2. CYTARABINE [Suspect]
     Indication: ACUTE MYELOID LEUKAEMIA
     Dosage: 38.8 MG QD SC
     Route: 058
     Dates: start: 20050331, end: 20050406
  3. LEVAQUIN [Concomitant]
  4. SPORANOX [Concomitant]
  5. VALTREX [Concomitant]
  6. TOPROL-XL [Concomitant]
  7. DIGOXIN [Concomitant]
  8. PROTONIX [Concomitant]
  9. DARVON [Concomitant]
  10. COMPAZINE [Concomitant]

REACTIONS (1)
  - BONE MARROW FAILURE [None]
